FAERS Safety Report 4911882-9 (Version None)
Quarter: 2006Q1

REPORT INFORMATION
  Report Type: 
  Country: None (occurrence: None)
  Receive Date: 20060213
  Receipt Date: 20060213
  Transmission Date: 20060701
  Serious: No
  Sender: FDA-Public Use
  Company Number: None

PATIENT
  Sex: Female
  Weight: 93.441 kg

DRUGS (3)
  1. AMIFOSTINE [Suspect]
     Indication: BONE NEOPLASM
     Dosage: 500MG SQ  M-F   (20 DOSES SINCE 1/10/06)
     Route: 058
  2. AMIFOSTINE [Suspect]
     Indication: DRY MOUTH
     Dosage: 500MG SQ  M-F   (20 DOSES SINCE 1/10/06)
     Route: 058
  3. AMIFOSTINE [Suspect]
     Indication: NECK MASS
     Dosage: 500MG SQ  M-F   (20 DOSES SINCE 1/10/06)
     Route: 058

REACTIONS (1)
  - RASH MACULO-PAPULAR [None]
